FAERS Safety Report 13034456 (Version 1)
Quarter: 2016Q4

REPORT INFORMATION
  Report Type: Spontaneous
  Country: JP (occurrence: JP)
  Receive Date: 20161216
  Receipt Date: 20161216
  Transmission Date: 20170207
  Serious: Yes (Death, Hospitalization)
  Sender: FDA-Public Use
  Company Number: JP-JNJFOC-20161214305

PATIENT
  Sex: Male

DRUGS (1)
  1. RISPERDAL [Suspect]
     Active Substance: RISPERIDONE
     Indication: PRODUCT USED FOR UNKNOWN INDICATION
     Dosage: WAS PRESCRIBED FOR 3 MONTHS IN A ROW
     Route: 048

REACTIONS (6)
  - Cerebral artery stenosis [Unknown]
  - Neuropsychiatric symptoms [Unknown]
  - Carotid artery occlusion [Unknown]
  - Death [Fatal]
  - Cerebral infarction [Unknown]
  - Hospitalisation [Unknown]
